FAERS Safety Report 7865858-2 (Version None)
Quarter: 2011Q4

REPORT INFORMATION
  Report Type: 
  Country: None (occurrence: None)
  Receive Date: 20111028
  Receipt Date: 20110310
  Transmission Date: 20120403
  Serious: No
  Sender: FDA-Public Use
  Company Number: US-GLAXOSMITHKLINE-A0917560A

PATIENT
  Age: 68 Year
  Sex: Male

DRUGS (4)
  1. ASACOL [Concomitant]
     Indication: GASTROINTESTINAL DISORDER
     Dates: start: 19800101
  2. MICARDIS [Concomitant]
  3. ADVAIR DISKUS 100/50 [Suspect]
     Indication: CHRONIC OBSTRUCTIVE PULMONARY DISEASE
     Dosage: 1PUFF TWICE PER DAY
     Route: 055
     Dates: start: 20080101
  4. SIMVASTATIN [Concomitant]

REACTIONS (3)
  - DYSPHONIA [None]
  - HYPOAESTHESIA [None]
  - CHEST PAIN [None]
